FAERS Safety Report 7236762-8 (Version None)
Quarter: 2011Q1

REPORT INFORMATION
  Report Type: 
  Country: None (occurrence: None)
  Receive Date: 20110120
  Receipt Date: 20110112
  Transmission Date: 20110831
  Serious: Yes (Other)
  Sender: FDA-Public Use
  Company Number: NZ-PURDUE-USA-2011-0062229

PATIENT
  Sex: Female

DRUGS (10)
  1. METFORMIN [Concomitant]
     Dosage: UNK
     Dates: start: 20050101
  2. CILAZAPRIL [Concomitant]
     Dosage: UNK
     Dates: start: 20090101
  3. OMEPRAZOLE [Concomitant]
     Dosage: UNK
     Dates: start: 20080101
  4. SIMVASTATIN [Concomitant]
     Dosage: UNK
     Dates: start: 20080101
  5. LOPERAMIDE [Concomitant]
     Dosage: UNK
     Dates: start: 20050101
  6. TRIAZOLAM [Concomitant]
     Dosage: UNK
     Dates: start: 20100810
  7. BLINDED BTDS PATCH [Suspect]
     Dosage: UNK
     Route: 062
     Dates: start: 20100928, end: 20101220
  8. PLACEBO [Suspect]
     Dosage: UNK
     Route: 062
     Dates: start: 20100928, end: 20101220
  9. PARACETAMOL [Concomitant]
     Dosage: UNK
     Dates: start: 20090101
  10. AMITRIPTYLINE [Concomitant]
     Indication: NEURALGIA
     Dosage: UNK UNK, DAILY
     Route: 062
     Dates: start: 20101221, end: 20101223

REACTIONS (1)
  - SUPRAVENTRICULAR TACHYCARDIA [None]
